FAERS Safety Report 6992590-X (Version None)
Quarter: 2010Q3

REPORT INFORMATION
  Report Type: 
  Country: None (occurrence: None)
  Receive Date: 20100917
  Receipt Date: 20100913
  Transmission Date: 20110219
  Serious: Yes (Hospitalization, Other)
  Sender: FDA-Public Use
  Company Number: TR-ROCHE-726575

PATIENT
  Age: 43 Year
  Sex: Male

DRUGS (9)
  1. DACLIZUMAB [Suspect]
     Dosage: FOR INDUCTION
     Route: 065
  2. RITUXIMAB [Suspect]
     Dosage: FOR 4 WEEKS; FORM INFUSION
     Route: 065
  3. MYCOPHENOLATE MOFETIL [Suspect]
     Dosage: MAINTAINENCE THERAPY
     Route: 065
  4. MYCOPHENOLATE MOFETIL [Suspect]
     Route: 065
  5. MYCOPHENOLATE MOFETIL [Suspect]
     Route: 065
  6. TACROLIMUS [Suspect]
     Route: 065
  7. TACROLIMUS [Suspect]
     Route: 065
  8. PREDNISOLONE [Suspect]
     Route: 065
  9. PREDNISOLONE [Suspect]
     Route: 065

REACTIONS (7)
  - BLOOD CREATININE INCREASED [None]
  - CYTOMEGALOVIRUS VIRAEMIA [None]
  - DIARRHOEA [None]
  - HYPOGAMMAGLOBULINAEMIA [None]
  - PANCYTOPENIA [None]
  - PNEUMONIA [None]
  - SEPSIS [None]
